FAERS Safety Report 4884468-2 (Version None)
Quarter: 2006Q1

REPORT INFORMATION
  Report Type: 
  Country: None (occurrence: None)
  Receive Date: 20060119
  Receipt Date: 20060110
  Transmission Date: 20060701
  Serious: Yes (Hospitalization)
  Sender: FDA-Public Use
  Company Number: FR-BOEHRINGER INGELHEIM PHARMACEUTICALS, INC.-2006-BP-00387YA

PATIENT
  Age: 66 Year
  Sex: Male

DRUGS (11)
  1. TAMSULOSIN HCL [Suspect]
     Indication: BENIGN NEOPLASM OF PROSTATE
     Route: 048
  2. ISRADIPINE [Concomitant]
     Indication: HYPERTENSION
     Route: 048
  3. NEBIVOLOL HCL [Concomitant]
     Route: 048
  4. COAPROVEL [Concomitant]
     Indication: HYPERTENSION
     Route: 048
  5. ALLOPURINOL [Concomitant]
  6. ACETYLSALICYLATE LYSINE [Concomitant]
  7. FENOFIBRATE [Concomitant]
  8. PIASCLEDINE [Concomitant]
  9. ZOLPIDEM TARTRATE [Concomitant]
  10. HYDROXYZINE HYDROCHLORIDE [Concomitant]
  11. SERENOA REPENS [Concomitant]

REACTIONS (8)
  - DIZZINESS [None]
  - DYSKINESIA [None]
  - HYPERHIDROSIS [None]
  - MALAISE [None]
  - NAUSEA [None]
  - PALLOR [None]
  - SYNCOPE [None]
  - VOMITING [None]
